FAERS Safety Report 19929053 (Version 2)
Quarter: 2022Q3

REPORT INFORMATION
  Report Type: Spontaneous
  Country: US (occurrence: US)
  Receive Date: 20211007
  Receipt Date: 20220929
  Transmission Date: 20221027
  Serious: Yes (Other)
  Sender: FDA-Public Use
  Company Number: US-RECORDATI RARE DISEASES INC.-2021002980

PATIENT
  Sex: Female

DRUGS (1)
  1. PANHEMATIN [Suspect]
     Active Substance: HEMIN
     Indication: Porphyria
     Dosage: 350 MILLIGRAM
     Route: 042

REACTIONS (4)
  - Porphyria [Unknown]
  - COVID-19 [Unknown]
  - Economic problem [Unknown]
  - Serum ferritin abnormal [Not Recovered/Not Resolved]
